FAERS Safety Report 8970693 (Version 1)
Quarter: 2012Q4

REPORT INFORMATION
  Report Type: 
  Country: US (occurrence: US)
  Receive Date: 20121218
  Receipt Date: 20121218
  Transmission Date: 20130627
  Serious: No
  Sender: FDA-Public Use
  Company Number: US-BRISTOL-MYERS SQUIBB COMPANY-16509283

PATIENT
  Sex: Male

DRUGS (2)
  1. ABILIFY TABS [Suspect]
     Indication: DELUSION
     Dosage: Started on .5mg then increased to 2mg and then to 3mg, then to 4mg
  2. ABILIFY TABS [Suspect]
     Indication: DEPRESSION
     Dosage: Started on .5mg then increased to 2mg and then to 3mg, then to 4mg

REACTIONS (1)
  - Akathisia [Unknown]
